FAERS Safety Report 4932355-3 (Version None)
Quarter: 2006Q1

REPORT INFORMATION
  Report Type: 
  Country: None (occurrence: None)
  Receive Date: 20060303
  Receipt Date: 20060221
  Transmission Date: 20060701
  Serious: Yes (Hospitalization)
  Sender: FDA-Public Use
  Company Number: GB-ABBOTT-06P-167-0325637-00

PATIENT
  Age: 42 Year
  Sex: Female

DRUGS (1)
  1. DEPAKOTE [Suspect]
     Indication: INTENTIONAL OVERDOSE
     Route: 048

REACTIONS (4)
  - AMNESIA [None]
  - COMA [None]
  - INTENTIONAL OVERDOSE [None]
  - RESPIRATORY DISORDER [None]
